FAERS Safety Report 23255509 (Version 3)
Quarter: 2024Q2

REPORT INFORMATION
  Report Type: Report from Study
  Country: CA (occurrence: CA)
  Receive Date: 20231203
  Receipt Date: 20240527
  Transmission Date: 20240716
  Serious: Yes (Other)
  Sender: FDA-Public Use
  Company Number: CA-002147023-NVSC2022CA230522

PATIENT
  Age: 61 Year
  Sex: Male

DRUGS (5)
  1. TAFINLAR [Suspect]
     Active Substance: DABRAFENIB MESYLATE
     Indication: Metastatic malignant melanoma
     Dosage: 150 MG, BID
     Route: 048
     Dates: start: 20220913
  2. TAFINLAR [Suspect]
     Active Substance: DABRAFENIB MESYLATE
     Dosage: 100 MG, BID
     Route: 048
     Dates: start: 20220913
  3. TAFINLAR [Suspect]
     Active Substance: DABRAFENIB MESYLATE
     Dosage: 50 MG, BID
     Route: 048
     Dates: start: 20220913
  4. MEKINIST [Suspect]
     Active Substance: TRAMETINIB DIMETHYL SULFOXIDE
     Indication: Metastatic malignant melanoma
     Dosage: 2 MG, QD
     Route: 048
     Dates: start: 20220913
  5. MEKINIST [Suspect]
     Active Substance: TRAMETINIB DIMETHYL SULFOXIDE
     Dosage: 1.5 MG, QD
     Route: 048
     Dates: start: 20220913

REACTIONS (27)
  - Feeling abnormal [Unknown]
  - Cardiac flutter [Unknown]
  - Alopecia [Unknown]
  - Sensitivity to weather change [Unknown]
  - Dermatitis allergic [Unknown]
  - Nodule [Unknown]
  - Swelling [Unknown]
  - Eczema [Unknown]
  - Chest pain [Unknown]
  - Flushing [Unknown]
  - Dyspnoea exertional [Unknown]
  - Headache [Unknown]
  - Dizziness [Unknown]
  - Nausea [Recovered/Resolved]
  - Nausea [Recovering/Resolving]
  - Pruritus [Recovering/Resolving]
  - Rash [Recovering/Resolving]
  - Skin exfoliation [Unknown]
  - COVID-19 [Unknown]
  - Body temperature fluctuation [Recovering/Resolving]
  - Appetite disorder [Unknown]
  - Fatigue [Unknown]
  - Weight increased [Not Recovered/Not Resolved]
  - Pyrexia [Recovering/Resolving]
  - Muscle spasms [Recovering/Resolving]
  - Nasopharyngitis [Unknown]
  - Dry skin [Unknown]

NARRATIVE: CASE EVENT DATE: 20220924
